FAERS Safety Report 22602501 (Version 4)
Quarter: 2023Q4

REPORT INFORMATION
  Report Type: Spontaneous
  Country: JP (occurrence: JP)
  Receive Date: 20230614
  Receipt Date: 20231205
  Transmission Date: 20240110
  Serious: Yes (Death, Hospitalization, Other)
  Sender: FDA-Public Use
  Company Number: JP-ONO-2023JP014803

PATIENT
  Age: 70 Year
  Sex: Male
  Weight: 64.5 kg

DRUGS (13)
  1. OPDIVO [Suspect]
     Active Substance: NIVOLUMAB
     Indication: Gastric cancer
     Dosage: UNK
     Route: 041
     Dates: start: 20220622, end: 202208
  2. OPDIVO [Suspect]
     Active Substance: NIVOLUMAB
     Dosage: UNK
     Route: 041
     Dates: start: 20221018
  3. OPDIVO [Suspect]
     Active Substance: NIVOLUMAB
     Dosage: UNK
     Route: 041
     Dates: end: 20230722
  4. OXALIPLATIN [Suspect]
     Active Substance: OXALIPLATIN
     Indication: Gastric cancer
     Route: 041
     Dates: start: 20220622, end: 202208
  5. OXALIPLATIN [Suspect]
     Active Substance: OXALIPLATIN
     Route: 041
     Dates: start: 20221018
  6. OXALIPLATIN [Suspect]
     Active Substance: OXALIPLATIN
     Route: 041
     Dates: start: 20230110
  7. OXALIPLATIN [Suspect]
     Active Substance: OXALIPLATIN
     Route: 041
     Dates: start: 20230523, end: 20230725
  8. GIMERACIL\OTERACIL\TEGAFUR [Suspect]
     Active Substance: GIMERACIL\OTERACIL POTASSIUM\TEGAFUR
     Indication: Gastric cancer
     Dosage: 60 MG, Q12H
     Route: 048
     Dates: start: 20220622, end: 20230109
  9. GIMERACIL\OTERACIL\TEGAFUR [Suspect]
     Active Substance: GIMERACIL\OTERACIL POTASSIUM\TEGAFUR
     Dosage: 50 MG, Q12H
     Route: 048
     Dates: start: 20230110, end: 20230508
  10. GIMERACIL\OTERACIL\TEGAFUR [Suspect]
     Active Substance: GIMERACIL\OTERACIL POTASSIUM\TEGAFUR
     Dosage: 40 MG, Q12H
     Route: 048
     Dates: start: 20230523, end: 20230807
  11. VOGLIBOSE [Concomitant]
     Active Substance: VOGLIBOSE
     Indication: Product used for unknown indication
     Dosage: 0.3 MG, Q8H
     Route: 048
     Dates: start: 20220607, end: 20230112
  12. INSULIN LISPRO BIOSIMILAR 1 [Concomitant]
     Indication: Product used for unknown indication
     Dosage: 4 UNITS, Q8H
     Route: 058
     Dates: start: 20220622, end: 20230824
  13. INSULIN GLARGINE [Concomitant]
     Active Substance: INSULIN GLARGINE
     Indication: Product used for unknown indication
     Dosage: 6 UNITS, EVERYDAY
     Route: 058
     Dates: start: 20220622, end: 20230824

REACTIONS (12)
  - Myelosuppression [Unknown]
  - Venoocclusive liver disease [Unknown]
  - Splenomegaly [Unknown]
  - Blood bilirubin increased [Recovered/Resolved]
  - Platelet count decreased [Recovering/Resolving]
  - Immune thrombocytopenia [Unknown]
  - Rheumatoid arthritis [Recovering/Resolving]
  - Pneumonia [Recovered/Resolved]
  - Bronchitis [Recovered/Resolved]
  - Biliary dilatation [Unknown]
  - Vomiting [Not Recovered/Not Resolved]
  - Malignant neoplasm progression [Fatal]

NARRATIVE: CASE EVENT DATE: 20220920
